FAERS Safety Report 6200051-0 (Version None)
Quarter: 2009Q2

REPORT INFORMATION
  Report Type: 
  Country: None (occurrence: None)
  Receive Date: 20090522
  Receipt Date: 20090515
  Transmission Date: 20091009
  Serious: Yes (Hospitalization)
  Sender: FDA-Public Use
  Company Number: US-AMGEN-US345994

PATIENT
  Sex: Female
  Weight: 107.4 kg

DRUGS (8)
  1. NPLATE [Suspect]
     Indication: IDIOPATHIC THROMBOCYTOPENIC PURPURA
     Route: 058
     Dates: start: 20090413, end: 20090420
  2. SPIRIVA [Concomitant]
     Route: 055
     Dates: start: 20090220
  3. OMEPRAZOLE [Concomitant]
     Route: 048
     Dates: start: 20090220
  4. LISINOPRIL [Concomitant]
     Route: 048
     Dates: start: 20090220
  5. OXYCONTIN [Concomitant]
     Route: 048
     Dates: start: 20090406
  6. BENICAR [Concomitant]
     Route: 048
     Dates: start: 20090220, end: 20090507
  7. NEBIVOLOL [Concomitant]
     Route: 048
     Dates: start: 20090313, end: 20090507
  8. ATIVAN [Concomitant]
     Route: 048

REACTIONS (4)
  - ATRIAL THROMBOSIS [None]
  - DEEP VEIN THROMBOSIS [None]
  - PULMONARY EMBOLISM [None]
  - PULMONARY INFARCTION [None]
